FAERS Safety Report 14303180 (Version 1)
Quarter: 2017Q4

REPORT INFORMATION
  Report Type: Spontaneous
  Country: GB (occurrence: GB)
  Receive Date: 20171219
  Receipt Date: 20171219
  Transmission Date: 20180321
  Serious: Yes (Other)
  Sender: FDA-Public Use
  Company Number: GB-MYLANLABS-2017M1079214

PATIENT
  Age: 36 Year
  Sex: Male
  Weight: 114.3 kg

DRUGS (7)
  1. ATORVASTATIN [Suspect]
     Active Substance: ATORVASTATIN
     Indication: BLOOD CHOLESTEROL INCREASED
     Dosage: WAS ON 80MG TO 20MG. 80MG OFF FOR A WHILE THEN DOWN TO 30MG STILL GETTING PROBLEMS
     Route: 048
  2. TRAZODONE [Concomitant]
     Active Substance: TRAZODONE HYDROCHLORIDE
  3. METOCLOPRAMIDE. [Concomitant]
     Active Substance: METOCLOPRAMIDE
  4. GLICLAZIDE [Concomitant]
     Active Substance: GLICLAZIDE
  5. DULOXETINE. [Concomitant]
     Active Substance: DULOXETINE
  6. METFORMIN [Concomitant]
     Active Substance: METFORMIN HYDROCHLORIDE
  7. ATORVASTATIN [Suspect]
     Active Substance: ATORVASTATIN
     Dosage: WAS ON 80MG TO 20MG. 80MG OFF FOR A WHILE THEN DOWN TO 30MG STILL GETTING PROBLEMS
     Route: 048

REACTIONS (4)
  - Pain in extremity [Not Recovered/Not Resolved]
  - Arthralgia [Not Recovered/Not Resolved]
  - Myalgia [Not Recovered/Not Resolved]
  - Muscular weakness [Not Recovered/Not Resolved]

NARRATIVE: CASE EVENT DATE: 2015
